FAERS Safety Report 5248062-6 (Version None)
Quarter: 2007Q1

REPORT INFORMATION
  Report Type: 
  Country: None (occurrence: None)
  Receive Date: 20070222
  Receipt Date: 20070205
  Transmission Date: 20070707
  Serious: Yes (Hospitalization)
  Sender: FDA-Public Use
  Company Number: 8021897

PATIENT
  Sex: Female

DRUGS (5)
  1. KEPPRA [Suspect]
     Dosage: 500 MG 2/D
     Dates: start: 20060201
  2. KEPPRA [Suspect]
     Dosage: 1500 MG 2/D
  3. KEPPRA [Suspect]
  4. DEPAKENE [Concomitant]
  5. DIPHANTOINE [Concomitant]

REACTIONS (5)
  - CONDITION AGGRAVATED [None]
  - CONVULSION [None]
  - DRUG HYPERSENSITIVITY [None]
  - STATUS EPILEPTICUS [None]
  - STEVENS-JOHNSON SYNDROME [None]
